FAERS Safety Report 5971612-9 (Version None)
Quarter: 2008Q4

REPORT INFORMATION
  Report Type: 
  Country: None (occurrence: None)
  Receive Date: 20081201
  Receipt Date: 20081120
  Transmission Date: 20090506
  Serious: Yes (Hospitalization)
  Sender: FDA-Public Use
  Company Number: FR-ELI_LILLY_AND_COMPANY-FR200811005051

PATIENT
  Sex: Male
  Weight: 51 kg

DRUGS (8)
  1. GEMCITABINE HCL [Suspect]
     Indication: NON-SMALL CELL LUNG CANCER
     Dosage: 1250 MG/M2, ON D1 AND D8
     Route: 042
     Dates: start: 20080822, end: 20081114
  2. CISPLATIN [Suspect]
     Indication: NON-SMALL CELL LUNG CANCER
     Dosage: 80 MG/M2, ON D1
     Route: 042
     Dates: start: 20080822, end: 20081107
  3. DURAGESIC-100 [Concomitant]
     Dosage: 200 UG, UNK
     Dates: start: 20081114
  4. MORPHINE [Concomitant]
     Dosage: 10 MG, EVERY 4 HRS
     Route: 048
     Dates: start: 20080808
  5. XANAX [Concomitant]
     Dosage: 0.5 MG, UNK
     Route: 048
     Dates: start: 20080808
  6. BI-PROFENID [Concomitant]
     Dosage: 150 MG, 2/D
     Dates: start: 20080808
  7. LYRICA [Concomitant]
     Dosage: 150 MG, UNK
     Route: 048
     Dates: start: 20081114
  8. NEXIUM [Concomitant]
     Dosage: 40 MG, UNK
     Route: 048
     Dates: start: 20080808

REACTIONS (1)
  - LEUKOENCEPHALOPATHY [None]
